FAERS Safety Report 10394671 (Version 2)
Quarter: 2014Q3

REPORT INFORMATION
  Report Type: Spontaneous
  Country: DE (occurrence: DE)
  Receive Date: 20140820
  Receipt Date: 20140820
  Transmission Date: 20150326
  Serious: Yes (Hospitalization)
  Sender: FDA-Public Use
  Company Number: DE-AMGEN-DEUSP2014058864

PATIENT
  Age: 79 Year
  Sex: Female

DRUGS (9)
  1. PANTOZOL [Concomitant]
     Active Substance: PANTOPRAZOLE SODIUM
     Dosage: 20 UNK, UNK
     Route: 048
  2. IDEOS [Concomitant]
     Active Substance: CALCIUM CARBONATE\CHOLECALCIFEROL
     Route: 048
  3. EPROSARTAN [Concomitant]
     Active Substance: EPROSARTAN
     Dosage: 600
  4. LECICARBON                         /00739901/ [Concomitant]
     Active Substance: LECITHIN\SODIUM BICARBONATE\SODIUM PHOSPHATE, MONOBASIC
     Dosage: UNK
  5. MACROGOL [Concomitant]
     Active Substance: POLYETHYLENE GLYCOLS
  6. PROLIA [Suspect]
     Active Substance: DENOSUMAB
     Indication: OSTEOPOROSIS
     Dosage: 60 MG, (ONCE)UNK
     Route: 058
     Dates: start: 201407
  7. L-THYROXIN [Concomitant]
     Active Substance: LEVOTHYROXINE SODIUM
     Dosage: 50 MUG, (1/2-0-0)UNK
  8. BACLOFEN. [Concomitant]
     Active Substance: BACLOFEN
     Dosage: 25
  9. SPASMEX                            /00376202/ [Concomitant]
     Dosage: 30

REACTIONS (1)
  - Acute generalised exanthematous pustulosis [Recovered/Resolved]

NARRATIVE: CASE EVENT DATE: 20140726
